FAERS Safety Report 7679036-3 (Version None)
Quarter: 2011Q3

REPORT INFORMATION
  Report Type: 
  Country: None (occurrence: None)
  Receive Date: 20110812
  Receipt Date: 20110808
  Transmission Date: 20111222
  Serious: No
  Sender: FDA-Public Use
  Company Number: US-BIOGENIDEC-2011BI030062

PATIENT
  Sex: Male

DRUGS (2)
  1. AVONEX [Suspect]
     Route: 030
     Dates: start: 20010301, end: 20081201
  2. AVONEX [Suspect]
     Indication: MULTIPLE SCLEROSIS
     Route: 030
     Dates: start: 20090616

REACTIONS (6)
  - DRUG INEFFECTIVE [None]
  - MEMORY IMPAIRMENT [None]
  - ABASIA [None]
  - FATIGUE [None]
  - SUDDEN ONSET OF SLEEP [None]
  - SPEECH DISORDER [None]
